FAERS Safety Report 22209456 (Version 1)
Quarter: 2023Q2

REPORT INFORMATION
  Report Type: Report from Study
  Country: US (occurrence: None)
  Receive Date: 20230414
  Receipt Date: 20230414
  Transmission Date: 20230722
  Serious: Yes (Death, Other)
  Sender: FDA-Public Use
  Company Number: 2023A085816

PATIENT
  Age: 25631 Day
  Sex: Female

DRUGS (2)
  1. TAGRISSO [Suspect]
     Active Substance: OSIMERTINIB
     Indication: Bronchial carcinoma
     Route: 048
     Dates: start: 202205
  2. TAGRISSO [Suspect]
     Active Substance: OSIMERTINIB
     Indication: Malignant mediastinal neoplasm
     Route: 048
     Dates: start: 202205

REACTIONS (2)
  - Death [Fatal]
  - Off label use [Unknown]

NARRATIVE: CASE EVENT DATE: 20230315
